FAERS Safety Report 18439487 (Version 1)
Quarter: 2020Q4

REPORT INFORMATION
  Report Type: Spontaneous
  Country: CN (occurrence: CN)
  Receive Date: 20201028
  Receipt Date: 20201028
  Transmission Date: 20210114
  Serious: Yes (Other)
  Sender: FDA-Public Use
  Company Number: CN-ELI_LILLY_AND_COMPANY-CN202010007548

PATIENT
  Age: 67 Year
  Sex: Male

DRUGS (1)
  1. GEMCITABINE HYDROCHLORIDE. [Suspect]
     Active Substance: GEMCITABINE HYDROCHLORIDE
     Indication: TRANSITIONAL CELL CARCINOMA
     Dosage: 1G/1.75M2, 2/M
     Route: 043

REACTIONS (3)
  - Off label use [Unknown]
  - Pneumonitis [Unknown]
  - Organising pneumonia [Unknown]
